FAERS Safety Report 15226624 (Version 1)
Quarter: 2018Q3

REPORT INFORMATION
  Report Type: Spontaneous
  Country: CA (occurrence: CA)
  Receive Date: 20180801
  Receipt Date: 20180801
  Transmission Date: 20181010
  Serious: Yes (Hospitalization)
  Sender: FDA-Public Use
  Company Number: CA-SANIK-2018SA192608AA

PATIENT
  Age: 15 Day
  Sex: Male

DRUGS (6)
  1. ACICLOVIR [Suspect]
     Active Substance: ACYCLOVIR
     Indication: ENCEPHALITIS
  2. AMPICILLIN [Suspect]
     Active Substance: AMPICILLIN
     Indication: SEPSIS NEONATAL
     Route: 042
  3. CEFOTAXIME SODIUM [Suspect]
     Active Substance: CEFOTAXIME SODIUM
     Indication: SEPSIS NEONATAL
     Route: 042
  4. CEFOTAXIME SODIUM [Suspect]
     Active Substance: CEFOTAXIME SODIUM
     Indication: ENCEPHALITIS
  5. AMPICILLIN [Suspect]
     Active Substance: AMPICILLIN
     Indication: ENCEPHALITIS
  6. ACICLOVIR [Suspect]
     Active Substance: ACYCLOVIR
     Indication: SEPSIS NEONATAL
     Route: 042

REACTIONS (9)
  - Thrombocytosis [Unknown]
  - Palmar erythema [Recovered/Resolved]
  - Apnoea [Recovered/Resolved]
  - Hypoalbuminaemia [Unknown]
  - Erythema [Recovered/Resolved]
  - Conjunctivitis [Unknown]
  - Oedema [Recovered/Resolved]
  - Alanine aminotransferase increased [Unknown]
  - Aspartate aminotransferase increased [Unknown]
